FAERS Safety Report 7000493-X (Version None)
Quarter: 2010Q3

REPORT INFORMATION
  Report Type: 
  Country: None (occurrence: None)
  Receive Date: 20100920
  Receipt Date: 20100908
  Transmission Date: 20110219
  Serious: No
  Sender: FDA-Public Use
  Company Number: CA-US-EMD SERONO, INC.-230454J08CAN

PATIENT
  Sex: Female

DRUGS (8)
  1. REBIF [Suspect]
     Indication: RELAPSING-REMITTING MULTIPLE SCLEROSIS
     Dates: start: 20080101, end: 20100113
  2. REBIF [Suspect]
     Dates: start: 20100115
  3. ACETAMINOPHEN [Concomitant]
  4. AVAPRO [Concomitant]
  5. MULTI-VITAMIN [Concomitant]
  6. VITAMIN D [Concomitant]
  7. CALCIUM [Concomitant]
  8. TYLENOL [Concomitant]

REACTIONS (10)
  - ALANINE AMINOTRANSFERASE INCREASED [None]
  - CARCINOID TUMOUR OF THE STOMACH [None]
  - FATIGUE [None]
  - GASTRITIS [None]
  - HEADACHE [None]
  - INFLUENZA LIKE ILLNESS [None]
  - INJECTION SITE REACTION [None]
  - MUSCULOSKELETAL DISCOMFORT [None]
  - PERNICIOUS ANAEMIA [None]
  - WHITE BLOOD CELL COUNT DECREASED [None]
